FAERS Safety Report 7678724-2 (Version None)
Quarter: 2011Q3

REPORT INFORMATION
  Report Type: 
  Country: None (occurrence: None)
  Receive Date: 20110811
  Receipt Date: 20110803
  Transmission Date: 20111222
  Serious: Yes (Hospitalization)
  Sender: FDA-Public Use
  Company Number: CN-GENENTECH-322562

PATIENT
  Age: 52 Year
  Sex: Female
  Weight: 50 kg

DRUGS (6)
  1. RITUXIMAB [Suspect]
     Indication: MANTLE CELL LYMPHOMA
     Dosage: UNK
     Route: 041
     Dates: start: 20110707, end: 20110728
  2. CYCLOPHOSPHAMIDE [Concomitant]
     Indication: MANTLE CELL LYMPHOMA
     Dosage: UNK UNK, Q3W
     Route: 041
     Dates: start: 20110707, end: 20110728
  3. PREDNISONE [Concomitant]
     Indication: MANTLE CELL LYMPHOMA
     Dosage: UNK
     Route: 048
     Dates: start: 20110707, end: 20110728
  4. DEXAMETHASONE [Concomitant]
     Indication: RASH ERYTHEMATOUS
     Dosage: 100 ML, UNK
     Dates: start: 20110728
  5. VINCRISTINE [Concomitant]
     Indication: MANTLE CELL LYMPHOMA
     Dosage: UNK UNK, Q3W
     Route: 041
     Dates: start: 20110707, end: 20110728
  6. ADRIAMYCIN PFS [Concomitant]
     Indication: MANTLE CELL LYMPHOMA
     Dosage: UNK UNK, Q3W
     Route: 041
     Dates: start: 20110707, end: 20110728

REACTIONS (2)
  - RASH ERYTHEMATOUS [None]
  - HEART RATE INCREASED [None]
